FAERS Safety Report 20730625 (Version 1)
Quarter: 2022Q2

REPORT INFORMATION
  Report Type: Spontaneous
  Country: US (occurrence: None)
  Receive Date: 20220420
  Receipt Date: 20220420
  Transmission Date: 20220720
  Serious: Yes (Hospitalization)
  Sender: FDA-Public Use
  Company Number: None

PATIENT
  Sex: Female

DRUGS (1)
  1. RETACRIT [Suspect]
     Active Substance: EPOETIN ALFA-EPBX
     Indication: Anaemia
     Dosage: OTHER STRENGTH : 10,000U/ML;?OTHER QUANTITY : 10,000 UNITS;?FREQUENCY : WEEKLY;?
     Route: 058
     Dates: start: 20220317

REACTIONS (1)
  - Cerebrovascular accident [None]
